FAERS Safety Report 12346338 (Version 1)
Quarter: 2016Q2

REPORT INFORMATION
  Report Type: Spontaneous
  Country: US (occurrence: US)
  Receive Date: 20160509
  Receipt Date: 20160509
  Transmission Date: 20160815
  Serious: Yes (Hospitalization)
  Sender: FDA-Public Use
  Company Number: US-BEH-2016061990

PATIENT
  Age: 52 Year
  Sex: Male

DRUGS (1)
  1. PRIVIGEN [Suspect]
     Active Substance: HUMAN IMMUNOGLOBULIN G
     Indication: IMMUNODEFICIENCY COMMON VARIABLE
     Dosage: DOSE: 40 G DAILY X 3 DAYS EVERY 4 WEEKS
     Route: 042
     Dates: start: 20131029, end: 20160425

REACTIONS (4)
  - Pulmonary embolism [Unknown]
  - Cardiomegaly [Unknown]
  - Respiratory distress [Unknown]
  - Neoplasm malignant [Unknown]

NARRATIVE: CASE EVENT DATE: 20160425
